FAERS Safety Report 24201838 (Version 2)
Quarter: 2024Q3

REPORT INFORMATION
  Report Type: Spontaneous
  Country: FR (occurrence: FR)
  Receive Date: 20240812
  Receipt Date: 20240923
  Transmission Date: 20241017
  Serious: Yes (Death, Hospitalization, Congenital Anomaly)
  Sender: MYLAN
  Company Number: None

PATIENT
  Age: 15 Day
  Sex: Male
  Weight: 0.8 kg

DRUGS (1)
  1. METHOTREXATE [Suspect]
     Active Substance: METHOTREXATE
     Indication: Psoriatic arthropathy
     Dosage: UNK
     Route: 065

REACTIONS (8)
  - Septic shock [Fatal]
  - Jaundice neonatal [Recovered/Resolved]
  - Intraventricular haemorrhage neonatal [Recovered/Resolved]
  - Neonatal respiratory distress syndrome [Recovered/Resolved]
  - Premature baby [Recovered/Resolved]
  - Anaemia [Recovered/Resolved]
  - Thrombocytopenia [Recovered/Resolved]
  - Foetal exposure via father [Recovered/Resolved]

NARRATIVE: CASE EVENT DATE: 20201226
